FAERS Safety Report 19808690 (Version 1)
Quarter: 2021Q3

REPORT INFORMATION
  Report Type: Report from Study
  Country: LB (occurrence: LB)
  Receive Date: 20210908
  Receipt Date: 20210908
  Transmission Date: 20211014
  Serious: Yes (Hospitalization, Other)
  Sender: FDA-Public Use
  Company Number: NVSC2021LB101972

PATIENT
  Age: 68 Year
  Sex: Female
  Weight: 72 kg

DRUGS (3)
  1. CORTISONE [Concomitant]
     Active Substance: CORTISONE
     Indication: PRODUCT USED FOR UNKNOWN INDICATION
     Dosage: UNK
     Route: 065
  2. REVOLADE [Suspect]
     Active Substance: ELTROMBOPAG OLAMINE
     Indication: APLASTIC ANAEMIA
     Dosage: 25 MG, QD
     Route: 048
     Dates: start: 201807, end: 202012
  3. REVOLADE [Suspect]
     Active Substance: ELTROMBOPAG OLAMINE
     Dosage: 60 MG, QD (LAST WEEK OF AUG 2021)
     Route: 048
     Dates: start: 201807

REACTIONS (9)
  - Back pain [Unknown]
  - Confusional state [Not Recovered/Not Resolved]
  - Urinary tract infection bacterial [Recovering/Resolving]
  - Gait disturbance [Recovered/Resolved]
  - Product availability issue [Unknown]
  - Dysarthria [Not Recovered/Not Resolved]
  - Rheumatic disorder [Recovered/Resolved]
  - Gastrointestinal bacterial infection [Recovering/Resolving]
  - Cerebral vascular occlusion [Unknown]

NARRATIVE: CASE EVENT DATE: 20210827
